FAERS Safety Report 7366908-2 (Version None)
Quarter: 2011Q1

REPORT INFORMATION
  Report Type: 
  Country: None (occurrence: None)
  Receive Date: 20110322
  Receipt Date: 20110314
  Transmission Date: 20110831
  Serious: Yes (Hospitalization)
  Sender: FDA-Public Use
  Company Number: B0699696A

PATIENT
  Sex: Female
  Weight: 86.4 kg

DRUGS (10)
  1. CLONIDINE [Concomitant]
  2. TRICOR [Concomitant]
  3. INSULIN [Concomitant]
  4. NEURONTIN [Concomitant]
  5. COREG [Concomitant]
  6. HYZAAR [Concomitant]
  7. AMITRIPTYLINE HCL [Concomitant]
  8. AVANDIA [Suspect]
     Indication: DIABETES MELLITUS
     Dosage: 8MG TWICE PER DAY
     Route: 048
     Dates: start: 20000901, end: 20060101
  9. ZOCOR [Concomitant]
  10. ALTACE [Concomitant]

REACTIONS (4)
  - CORONARY ARTERY BYPASS [None]
  - MYOCARDIAL INFARCTION [None]
  - CORONARY ARTERY DISEASE [None]
  - TRANSIENT ISCHAEMIC ATTACK [None]
